FAERS Safety Report 25223241 (Version 1)
Quarter: 2025Q2

REPORT INFORMATION
  Report Type: Spontaneous
  Country: US (occurrence: US)
  Receive Date: 20250422
  Receipt Date: 20250422
  Transmission Date: 20250717
  Serious: No
  Sender: DR REDDYS
  Company Number: US-DRL-USA-USA/2025/04/005430

PATIENT
  Age: 63 Year
  Sex: Female

DRUGS (2)
  1. PREGABALIN [Suspect]
     Active Substance: PREGABALIN
     Indication: Persistent genital arousal disorder
  2. PREGABALIN [Suspect]
     Active Substance: PREGABALIN
     Indication: Genital dysaesthesia

REACTIONS (1)
  - Drug ineffective for unapproved indication [Unknown]
